FAERS Safety Report 21597808 (Version 2)
Quarter: 2022Q4

REPORT INFORMATION
  Report Type: Report from Study
  Country: NL (occurrence: None)
  Receive Date: 20221115
  Receipt Date: 20221128
  Transmission Date: 20230113
  Serious: Yes (Hospitalization)
  Sender: FDA-Public Use
  Company Number: NL-ROCHE-3217037

PATIENT
  Age: 75 Year
  Sex: Female

DRUGS (5)
  1. ATEZOLIZUMAB [Suspect]
     Active Substance: ATEZOLIZUMAB
     Indication: Triple negative breast cancer
     Dosage: ON 01/NOV/2022, SHE RECEIVED MOST RECENT DOSE PRIOR TO SAE
     Route: 041
     Dates: start: 20211228
  2. CARBOPLATIN [Suspect]
     Active Substance: CARBOPLATIN
     Indication: Triple negative breast cancer
     Dosage: ON 06/SEP/2021, SHE RECEIVED MOST RECENT DOSE PRIOR TO SAE
     Route: 042
     Dates: start: 20210322
  3. PACLITAXEL [Suspect]
     Active Substance: PACLITAXEL
     Indication: Triple negative breast cancer
     Dosage: ON 08/JUN/2022, SHE RECEIVED MOST RECENT DOSE PRIOR TO SAE
     Route: 042
     Dates: start: 20211228
  4. CYCLOPHOSPHAMIDE [Suspect]
     Active Substance: CYCLOPHOSPHAMIDE
     Indication: Triple negative breast cancer
     Dosage: ON 06/SEP/2021, SHE RECEIVED MOST RECENT DOSE PRIOR TO SAE
     Route: 042
     Dates: start: 20210322
  5. AUGMENTIN [Concomitant]
     Active Substance: AMOXICILLIN\CLAVULANATE POTASSIUM
     Indication: Urinary tract infection
     Dosage: 500/25 MG
     Dates: start: 20221105, end: 20221109

REACTIONS (1)
  - Malaise [Recovered/Resolved]

NARRATIVE: CASE EVENT DATE: 20221109
